FAERS Safety Report 23199297 (Version 2)
Quarter: 2024Q1

REPORT INFORMATION
  Report Type: Spontaneous
  Country: US (occurrence: US)
  Receive Date: 20231117
  Receipt Date: 20240219
  Transmission Date: 20240410
  Serious: No
  Sender: FDA-Public Use
  Company Number: US-Stemline Therapeutics, Inc.-2023ST003685

PATIENT
  Age: 83 Year
  Sex: Female

DRUGS (2)
  1. ORSERDU [Suspect]
     Active Substance: ELACESTRANT
     Indication: Product used for unknown indication
     Dosage: 345 MG, 1 TABLET, ONCE A DAY.
     Route: 048
     Dates: start: 20230703
  2. ORSERDU [Suspect]
     Active Substance: ELACESTRANT
     Dosage: 258MG
     Route: 048
     Dates: start: 20230703

REACTIONS (8)
  - Dehydration [Unknown]
  - Feeling abnormal [Unknown]
  - Depressed mood [Not Recovered/Not Resolved]
  - Bone pain [Unknown]
  - Back pain [Unknown]
  - Decreased appetite [Recovering/Resolving]
  - Fatigue [Not Recovered/Not Resolved]
  - Arthralgia [Unknown]
